FAERS Safety Report 4550741-0 (Version None)
Quarter: 2004Q4

REPORT INFORMATION
  Report Type: 
  Country: None (occurrence: None)
  Receive Date: 20041217
  Receipt Date: 20040924
  Transmission Date: 20050328
  Serious: No
  Sender: FDA-Public Use
  Company Number: 2004-BP-087672BP

PATIENT
  Age: 81 Year
  Sex: Female

DRUGS (3)
  1. SPIRIVA [Suspect]
     Indication: CHRONIC OBSTRUCTIVE AIRWAYS DISEASE
     Dosage: 18 MCG *18 MCG) IH
     Route: 055
     Dates: start: 20040513
  2. FORADIL [Concomitant]
  3. FOSAMAX [Concomitant]

REACTIONS (3)
  - CONSTIPATION [None]
  - FUNGAL INFECTION [None]
  - INSOMNIA [None]
